FAERS Safety Report 9805603 (Version 11)
Quarter: 2015Q3

REPORT INFORMATION
  Report Type: Report from Study
  Country: US (occurrence: US)
  Receive Date: 20140109
  Receipt Date: 20150928
  Transmission Date: 20151125
  Serious: Yes (Life-Threatening, Hospitalization, Other)
  Sender: FDA-Public Use
  Company Number: US-SA-2013SA102807

PATIENT
  Age: 62 Year
  Sex: Male

DRUGS (2)
  1. AUBAGIO [Suspect]
     Active Substance: TERIFLUNOMIDE
     Indication: MULTIPLE SCLEROSIS
     Dosage: TAKEN FROM:ABOUT 1 MONTH AGO
     Route: 048
     Dates: start: 20130919
  2. AMPYRA [Suspect]
     Active Substance: DALFAMPRIDINE
     Route: 065

REACTIONS (16)
  - Pneumonia [Unknown]
  - Fall [Unknown]
  - Alopecia [Not Recovered/Not Resolved]
  - Asthenia [Recovering/Resolving]
  - Euphoric mood [Unknown]
  - Hemiparesis [Recovered/Resolved]
  - Dysgraphia [Unknown]
  - Influenza [Unknown]
  - Multiple sclerosis [Recovered/Resolved]
  - Contusion [Unknown]
  - Urinary retention [Unknown]
  - Multiple sclerosis relapse [Unknown]
  - Insomnia [Recovered/Resolved]
  - Pulmonary embolism [Unknown]
  - Flank pain [Not Recovered/Not Resolved]
  - Malaise [Unknown]

NARRATIVE: CASE EVENT DATE: 2013
